FAERS Safety Report 5083389-2 (Version None)
Quarter: 2006Q3

REPORT INFORMATION
  Report Type: 
  Country: None (occurrence: None)
  Receive Date: 20060816
  Receipt Date: 20060816
  Transmission Date: 20061208
  Serious: Yes (Hospitalization)
  Sender: FDA-Public Use
  Company Number: None

PATIENT
  Age: 54 Year
  Sex: Male
  Weight: 75.7 kg

DRUGS (6)
  1. OXALIPLATIN [Suspect]
     Indication: SMALL INTESTINE CARCINOMA
     Dosage: 255MG  IV  Q3WEEKS
     Route: 042
     Dates: start: 20060404, end: 20060714
  2. CAPECITABINE   1125MG/M2 [Suspect]
     Indication: SMALL INTESTINE CARCINOMA
     Dosage: 2000MG  PO  DAY 1-14
     Route: 048
     Dates: start: 20060404, end: 20060728
  3. CREAM-20 [Concomitant]
  4. SEROQUEL [Concomitant]
  5. MULTI-VITAMIN [Concomitant]
  6. LAMICTAL [Concomitant]

REACTIONS (2)
  - DISEASE PROGRESSION [None]
  - PYREXIA [None]
